FAERS Safety Report 9060137 (Version 4)
Quarter: 2018Q4

REPORT INFORMATION
  Report Type: Spontaneous
  Country: FR (occurrence: FR)
  Receive Date: 20130212
  Receipt Date: 20181216
  Transmission Date: 20190205
  Serious: Yes (Death, Hospitalization, Other)
  Sender: FDA-Public Use
  Company Number: PHHY2013FR013377

PATIENT
  Age: 56 Year
  Sex: Male

DRUGS (24)
  1. KETOPROFEN. [Concomitant]
     Active Substance: KETOPROFEN
     Indication: PRODUCT USED FOR UNKNOWN INDICATION
     Dosage: UNK
     Route: 065
     Dates: start: 20080622, end: 20080626
  2. XANAX [Suspect]
     Active Substance: ALPRAZOLAM
     Indication: PSYCHOTIC DISORDER
     Dosage: 0.25 MG, QD (3 DF, TID)
     Route: 065
     Dates: start: 20080718
  3. LOXAPAC [Suspect]
     Active Substance: LOXAPINE
     Indication: PSYCHOTIC DISORDER
     Dosage: 3 DF, TID
     Route: 065
     Dates: start: 20080703
  4. LOXAPAC [Suspect]
     Active Substance: LOXAPINE
     Dosage: 9 ?G/L, QD
     Route: 065
     Dates: start: 20080703
  5. AMOXICILLIN+CLAVULANATE SANDOZ [Suspect]
     Active Substance: AMOXICILLIN\CLAVULANATE POTASSIUM
     Indication: PNEUMONIA ASPIRATION
     Dosage: 1 G, QD
     Route: 048
     Dates: start: 20080622, end: 20080630
  6. AMOXICILLIN+CLAVULANATE SANDOZ [Suspect]
     Active Substance: AMOXICILLIN\CLAVULANATE POTASSIUM
     Indication: LUNG DISORDER
     Dosage: 9 ?G/L, QD
     Route: 065
     Dates: start: 20080622, end: 20080630
  7. TERCIAN [Suspect]
     Active Substance: CYAMEMAZINE
     Dosage: 1 DF, UNK
     Route: 048
  8. EFFERALGAN [Concomitant]
     Active Substance: ACETAMINOPHEN
     Dosage: 500 MG, UNK (500 MG 6 DAILY)
     Route: 048
     Dates: start: 20080622, end: 20080625
  9. EFFERALGAN [Concomitant]
     Active Substance: ACETAMINOPHEN
     Indication: PRODUCT USED FOR UNKNOWN INDICATION
     Dosage: 2 DF, TID (500 MG 6 DAILY)
     Route: 048
     Dates: start: 20080622, end: 20080625
  10. VENTOLINE [Concomitant]
     Active Substance: ALBUTEROL
     Indication: PRODUCT USED FOR UNKNOWN INDICATION
     Dosage: 2 DF, TID
     Route: 065
     Dates: start: 20080629
  11. PHLOROGLUCINOL [Concomitant]
     Active Substance: PHLOROGLUCINOL
     Indication: PRODUCT USED FOR UNKNOWN INDICATION
     Dosage: UNK
     Route: 065
  12. AMOXICILLIN TRIHYDRATE [Suspect]
     Active Substance: AMOXICILLIN
     Indication: LUNG DISORDER
     Dosage: 1 G, QD
     Route: 065
     Dates: start: 20080622, end: 20080630
  13. ALPRAZOLAM. [Suspect]
     Active Substance: ALPRAZOLAM
     Indication: PRODUCT USED FOR UNKNOWN INDICATION
     Dosage: UNK
     Route: 065
  14. TERCIAN [Suspect]
     Active Substance: CYAMEMAZINE
     Dosage: 4 ?G/L, QD
     Route: 048
     Dates: start: 20080718
  15. LEPTICUR [Suspect]
     Active Substance: TROPATEPINE HYDROCHLORIDE
     Indication: PSYCHOTIC DISORDER
     Dosage: 2 DF, BID (10 MG QD)
     Route: 048
     Dates: start: 20080621
  16. SPASFON LYOC [Concomitant]
     Active Substance: PHLOROGLUCINOL
     Indication: PRODUCT USED FOR UNKNOWN INDICATION
     Dosage: 2 DF, TID
     Route: 065
     Dates: start: 20080626
  17. SALBUTAMOL SULFATE [Concomitant]
     Active Substance: ALBUTEROL SULFATE
     Indication: PRODUCT USED FOR UNKNOWN INDICATION
     Dosage: UNK
     Route: 065
  18. ABILIFY [Suspect]
     Active Substance: ARIPIPRAZOLE
     Indication: PSYCHOTIC DISORDER
     Dosage: 10 MG, QD
     Route: 048
     Dates: start: 20080715
  19. TERCIAN [Suspect]
     Active Substance: CYAMEMAZINE
     Indication: PSYCHOTIC DISORDER
     Dosage: 25 MG, UNK
     Route: 065
  20. XANAX [Suspect]
     Active Substance: ALPRAZOLAM
     Dosage: 9 ?G/L, QD
     Route: 048
     Dates: start: 20080718
  21. SOLIAN [Suspect]
     Active Substance: AMISULPRIDE
     Indication: PSYCHOTIC DISORDER
     Dosage: 0.5 DF, QD (50 MG, QD)
     Route: 048
     Dates: start: 20080621
  22. PARACETAMOL [Concomitant]
     Active Substance: ACETAMINOPHEN
     Indication: PRODUCT USED FOR UNKNOWN INDICATION
     Dosage: UNK
     Route: 065
  23. HYDROXYZINE [Suspect]
     Active Substance: HYDROXYZINE HYDROCHLORIDE
     Indication: PRODUCT USED FOR UNKNOWN INDICATION
     Dosage: 100 MG, UNK
     Route: 065
  24. ATARAX [Suspect]
     Active Substance: HYDROXYZINE HYDROCHLORIDE
     Indication: PSYCHOTIC DISORDER
     Dosage: 1 DF, QD
     Route: 065
     Dates: start: 20080621

REACTIONS (6)
  - Sepsis [Fatal]
  - Hyperleukocytosis [Fatal]
  - Diarrhoea infectious [Fatal]
  - Acute kidney injury [Fatal]
  - Leukocytosis [Fatal]
  - Enterocolitis [Fatal]

NARRATIVE: CASE EVENT DATE: 20080718
